FAERS Safety Report 4512528-4 (Version None)
Quarter: 2004Q4

REPORT INFORMATION
  Report Type: 
  Country: None (occurrence: None)
  Receive Date: 20041008
  Receipt Date: 20040910
  Transmission Date: 20050328
  Serious: Yes (Other)
  Sender: FDA-Public Use
  Company Number: 380386

PATIENT
  Sex: Male

DRUGS (1)
  1. FUZEON [Suspect]
     Indication: DRUG USE FOR UNKNOWN INDICATION
     Dates: start: 20040915

REACTIONS (3)
  - ERYTHEMA [None]
  - JOINT SWELLING [None]
  - LOCALISED EXFOLIATION [None]
